FAERS Safety Report 25024629 (Version 1)
Quarter: 2025Q1

REPORT INFORMATION
  Report Type: Spontaneous
  Country: US (occurrence: None)
  Receive Date: 20250228
  Receipt Date: 20250228
  Transmission Date: 20250409
  Serious: Yes (Hospitalization)
  Sender: FDA-CTU
  Company Number: None

PATIENT
  Age: 85 Year
  Sex: Male
  Weight: 83 kg

DRUGS (1)
  1. SULFAMETHOXAZOLE AND TRIMETHOPRIM [Suspect]
     Active Substance: SULFAMETHOXAZOLE\TRIMETHOPRIM
     Indication: Infection
     Route: 048
     Dates: start: 20240813, end: 20240822

REACTIONS (4)
  - Blood creatinine increased [None]
  - Hyperkalaemia [None]
  - Acute kidney injury [None]
  - Tubulointerstitial nephritis [None]

NARRATIVE: CASE EVENT DATE: 20240822
